FAERS Safety Report 9056867 (Version 1)
Quarter: 2013Q1

REPORT INFORMATION
  Report Type: Report from Study
  Country: JP (occurrence: JP)
  Receive Date: 20130201
  Receipt Date: 20130201
  Transmission Date: 20140127
  Serious: Yes (Other)
  Sender: FDA-Public Use
  Company Number: JP-GLAXOSMITHKLINE-B0860782A

PATIENT
  Age: 76 None
  Sex: Female
  Weight: 45 kg

DRUGS (14)
  1. TYKERB [Suspect]
     Indication: BREAST CANCER
     Route: 048
     Dates: start: 20110309, end: 20110622
  2. TYKERB [Suspect]
     Indication: BREAST CANCER
     Route: 048
     Dates: start: 20110714, end: 20110803
  3. TYKERB [Suspect]
     Indication: BREAST CANCER
     Route: 048
     Dates: start: 20110804, end: 20110907
  4. TYKERB [Suspect]
     Indication: BREAST CANCER
     Route: 048
     Dates: start: 20111004
  5. VINORELBINE DITARTRATE [Suspect]
     Route: 042
     Dates: start: 20100517, end: 20110907
  6. VINORELBINE DITARTRATE [Suspect]
     Route: 042
     Dates: start: 20111004
  7. TRASTUZUMAB [Suspect]
     Route: 042
     Dates: start: 20100517, end: 20110622
  8. TRASTUZUMAB [Suspect]
     Route: 042
     Dates: start: 20110706, end: 20110907
  9. TRASTUZUMAB [Suspect]
     Route: 042
     Dates: start: 20111004
  10. CALCITRIOL [Concomitant]
     Indication: OSTEOPOROSIS
     Route: 048
  11. FOSAMAC [Concomitant]
     Indication: OSTEOPOROSIS
     Route: 048
  12. ASPARA-CA [Concomitant]
     Indication: OSTEOPOROSIS
     Route: 048
  13. FERROMIA [Concomitant]
     Indication: IRON DEFICIENCY ANAEMIA
     Route: 048
  14. CINAL [Concomitant]
     Indication: IRON DEFICIENCY ANAEMIA
     Route: 048

REACTIONS (4)
  - Cardiac failure [Recovered/Resolved]
  - Pyelonephritis [Recovered/Resolved]
  - Diarrhoea [Recovering/Resolving]
  - Decreased appetite [Recovered/Resolved]
